FAERS Safety Report 11583176 (Version 2)
Quarter: 2015Q4

REPORT INFORMATION
  Report Type: Spontaneous
  Country: FR (occurrence: FR)
  Receive Date: 20151001
  Receipt Date: 20151020
  Transmission Date: 20160304
  Serious: Yes (Hospitalization)
  Sender: FDA-Public Use
  Company Number: FR-ROCHE-1638259

PATIENT
  Age: 77 Year
  Sex: Male

DRUGS (10)
  1. RAMIPRIL. [Concomitant]
     Active Substance: RAMIPRIL
     Route: 065
     Dates: start: 20141201
  2. TRAMADOL. [Suspect]
     Active Substance: TRAMADOL
     Indication: PRODUCT USED FOR UNKNOWN INDICATION
     Dosage: BASE
     Route: 042
     Dates: start: 20150821, end: 20150901
  3. ERWINASE [Suspect]
     Active Substance: ASPARAGINASE ERWINIA CHRYSANTHEMI
     Indication: B-CELL LYMPHOMA
     Route: 042
     Dates: start: 20150821, end: 20150827
  4. TORISEL [Suspect]
     Active Substance: TEMSIROLIMUS
     Indication: B-CELL LYMPHOMA
     Route: 042
     Dates: start: 20150821, end: 20150827
  5. ORACILLINE [Concomitant]
     Active Substance: PENICILLIN V
     Route: 065
     Dates: start: 20140301
  6. MABTHERA [Suspect]
     Active Substance: RITUXIMAB
     Indication: B-CELL LYMPHOMA
     Route: 042
     Dates: start: 20150821
  7. ZELITREX [Concomitant]
     Active Substance: VALACYCLOVIR HYDROCHLORIDE
     Route: 065
     Dates: start: 20140807
  8. ACUPAN [Suspect]
     Active Substance: NEFOPAM HYDROCHLORIDE
     Indication: PRODUCT USED FOR UNKNOWN INDICATION
     Route: 042
     Dates: start: 20150821, end: 20150901
  9. METFORMIN [Concomitant]
     Active Substance: METFORMIN HYDROCHLORIDE
     Route: 065
     Dates: start: 20140807
  10. BACTRIM [Concomitant]
     Active Substance: SULFAMETHOXAZOLE\TRIMETHOPRIM
     Route: 065
     Dates: start: 20140807

REACTIONS (5)
  - Disorientation [Recovered/Resolved]
  - Encephalopathy [Recovered/Resolved]
  - Hyperammonaemia [Recovered/Resolved]
  - Confusional state [Recovered/Resolved]
  - Stupor [Recovered/Resolved]

NARRATIVE: CASE EVENT DATE: 20150829
